FAERS Safety Report 5575008-3 (Version None)
Quarter: 2007Q4

REPORT INFORMATION
  Report Type: 
  Country: None (occurrence: None)
  Receive Date: 20071227
  Receipt Date: 20071220
  Transmission Date: 20080405
  Serious: Yes (Death, Hospitalization)
  Sender: FDA-Public Use
  Company Number: BR-ASTRAZENECA-2007UW27958

PATIENT
  Age: 81 Year
  Sex: Female

DRUGS (3)
  1. SYMBICORT [Suspect]
     Indication: EMPHYSEMA
     Route: 055
     Dates: start: 20071001
  2. ATROVENT [Concomitant]
     Indication: EMPHYSEMA
     Route: 055
     Dates: start: 20071001
  3. OXYGEN [Concomitant]

REACTIONS (3)
  - LUNG NEOPLASM MALIGNANT [None]
  - PLEURAL EFFUSION [None]
  - RESPIRATORY FAILURE [None]
